FAERS Safety Report 5675069-7 (Version None)
Quarter: 2008Q1

REPORT INFORMATION
  Report Type: 
  Country: None (occurrence: None)
  Receive Date: 20080320
  Receipt Date: 20071207
  Transmission Date: 20080703
  Serious: Yes (Other)
  Sender: FDA-Public Use
  Company Number: US-SANOFI-SYNTHELABO-A03200706869

PATIENT
  Age: 74 Year
  Sex: Female

DRUGS (3)
  1. PROZAC [Concomitant]
     Dosage: UNK
     Route: 048
  2. ALEVE [Concomitant]
     Dosage: UNK
     Route: 048
  3. AMBIEN [Suspect]
     Indication: INSOMNIA
     Dosage: UNK
     Route: 048

REACTIONS (3)
  - AMNESIA [None]
  - IMPAIRED DRIVING ABILITY [None]
  - SOMNAMBULISM [None]
